FAERS Safety Report 7910270-0 (Version None)
Quarter: 2011Q4

REPORT INFORMATION
  Report Type: 
  Country: None (occurrence: None)
  Receive Date: 20111111
  Receipt Date: 20111101
  Transmission Date: 20120403
  Serious: Yes (Other)
  Sender: FDA-Public Use
  Company Number: CA-ROCHE-GNE321072

PATIENT
  Sex: Female

DRUGS (2)
  1. XOLAIR [Suspect]
     Indication: ASTHMA
     Dosage: 300 MG, Q2W
     Route: 058
     Dates: start: 20110207
  2. AZITHROMYCIN [Concomitant]
     Indication: PRODUCT USED FOR UNKNOWN INDICATION

REACTIONS (4)
  - RESPIRATORY TRACT INFECTION [None]
  - NASOPHARYNGITIS [None]
  - COUGH [None]
  - DRUG HYPERSENSITIVITY [None]
